FAERS Safety Report 4414616-X (Version None)
Quarter: 2004Q3

REPORT INFORMATION
  Report Type: 
  Country: None (occurrence: None)
  Receive Date: 20040729
  Receipt Date: 20040706
  Transmission Date: 20050211
  Serious: Yes (Other)
  Sender: FDA-Public Use
  Company Number: M2004-0974

PATIENT
  Age: 37 Year
  Sex: Female

DRUGS (4)
  1. RIMACTANE [Suspect]
     Indication: TUBERCULOSIS
     Dates: start: 20040223, end: 20040510
  2. EBUTOL [Concomitant]
  3. PYRIDOXAL PHOSPHATE [Concomitant]
  4. FLUNITRAZEPAM [Concomitant]

REACTIONS (4)
  - FEELING ABNORMAL [None]
  - GAMMA-GLUTAMYLTRANSFERASE INCREASED [None]
  - LIVER DISORDER [None]
  - PSYCHIATRIC SYMPTOM [None]
